FAERS Safety Report 22956308 (Version 3)
Quarter: 2023Q4

REPORT INFORMATION
  Report Type: Spontaneous
  Country: FR (occurrence: FR)
  Receive Date: 20230919
  Receipt Date: 20231012
  Transmission Date: 20240110
  Serious: No
  Sender: FDA-Public Use
  Company Number: FR-JNJFOC-20230863039

PATIENT
  Age: 48 Year
  Sex: Female

DRUGS (1)
  1. SIMPONI [Suspect]
     Active Substance: GOLIMUMAB
     Indication: Spondylitis
     Dosage: STRENGTH: 50.00 MG / 0.50 ML
     Route: 058

REACTIONS (4)
  - Accidental exposure to product [Unknown]
  - Injection site pain [Unknown]
  - Injection site haemorrhage [Unknown]
  - Device leakage [Unknown]

NARRATIVE: CASE EVENT DATE: 20230824
